FAERS Safety Report 5474006-8 (Version None)
Quarter: 2007Q4

REPORT INFORMATION
  Report Type: 
  Country: None (occurrence: None)
  Receive Date: 20071002
  Receipt Date: 20070924
  Transmission Date: 20080405
  Serious: Yes (Other)
  Sender: FDA-Public Use
  Company Number: PHBS2007NL15754

PATIENT
  Age: 45 Year
  Sex: Female

DRUGS (4)
  1. GLEEVEC [Suspect]
     Dosage: 400 MG
  2. OMEPRAZOLE [Concomitant]
  3. PLAVIX [Concomitant]
  4. TRICHINON [Concomitant]

REACTIONS (3)
  - AMENORRHOEA [None]
  - MENORRHAGIA [None]
  - WEIGHT DECREASED [None]
